FAERS Safety Report 7755712-9 (Version None)
Quarter: 2011Q3

REPORT INFORMATION
  Report Type: 
  Country: None (occurrence: None)
  Receive Date: 20110915
  Receipt Date: 20110915
  Transmission Date: 20111222
  Serious: Yes (Disabling)
  Sender: FDA-Public Use
  Company Number: None

PATIENT
  Sex: Female
  Weight: 63.5036 kg

DRUGS (2)
  1. RISPERDAL [Suspect]
     Indication: SCHIZOPHRENIA
     Dosage: RISPERDAL CONSTA 37.5 MG EVERY 2 WEEKS INJECTION
     Dates: start: 20091201, end: 20110729
  2. RISPERIDONE [Suspect]
     Dosage: RISPERIDONE ZYDUS 1 MG DAILY PILL
     Dates: start: 20100610, end: 20101201

REACTIONS (4)
  - WALKING AID USER [None]
  - NEURALGIA [None]
  - ARTHRALGIA [None]
  - ARTHROPATHY [None]
